FAERS Safety Report 5964966-0 (Version None)
Quarter: 2008Q4

REPORT INFORMATION
  Report Type: 
  Country: None (occurrence: None)
  Receive Date: 20081125
  Receipt Date: 20081113
  Transmission Date: 20090506
  Serious: Yes (Hospitalization)
  Sender: FDA-Public Use
  Company Number: PHHY2008MX28280

PATIENT
  Age: 48 Year
  Sex: Male

DRUGS (1)
  1. DIOVAN HCT [Suspect]
     Indication: HYPERTENSION
     Dosage: 160/25 MG PER DAY
     Route: 048
     Dates: start: 20080601

REACTIONS (2)
  - FEMUR FRACTURE [None]
  - LIMB OPERATION [None]
